FAERS Safety Report 9250954 (Version 2)
Quarter: 2013Q2

REPORT INFORMATION
  Report Type: Spontaneous
  Country: US (occurrence: US)
  Receive Date: 20130424
  Receipt Date: 20130619
  Transmission Date: 20140414
  Serious: Yes (Death, Hospitalization, Other)
  Sender: FDA-Public Use
  Company Number: PHEH2013US009047

PATIENT
  Age: 51 Year
  Sex: Female
  Weight: 95.24 kg

DRUGS (2)
  1. DIOVAN [Suspect]
     Indication: HYPERTENSION
     Route: 048
  2. LACTULOSE [Concomitant]

REACTIONS (8)
  - Colon cancer [Fatal]
  - Anaemia [Fatal]
  - Rectal haemorrhage [Fatal]
  - Constipation [Fatal]
  - Asthenia [Fatal]
  - Metastases to liver [Unknown]
  - Hepatic steatosis [Unknown]
  - Mesenteric neoplasm [Unknown]
